FAERS Safety Report 7518184-5 (Version None)
Quarter: 2011Q2

REPORT INFORMATION
  Report Type: 
  Country: None (occurrence: None)
  Receive Date: 20110523
  Receipt Date: 20110509
  Transmission Date: 20111010
  Serious: Yes (Death, Hospitalization)
  Sender: FDA-Public Use
  Company Number: 2011DZ0009

PATIENT
  Sex: Female

DRUGS (1)
  1. ORFADIN [Suspect]
     Indication: TYROSINAEMIA
     Dosage: 5 MG (5MG, TOTAL DAILY DOSE/1 MG/KG, DAY, ORAL
     Route: 048
     Dates: start: 20100721, end: 20100817

REACTIONS (4)
  - PLATELET COUNT DECREASED [None]
  - PROTHROMBIN TIME RATIO DECREASED [None]
  - NOSOCOMIAL INFECTION [None]
  - GENERAL PHYSICAL HEALTH DETERIORATION [None]
